FAERS Safety Report 6079227-1 (Version None)
Quarter: 2009Q1

REPORT INFORMATION
  Report Type: 
  Country: None (occurrence: None)
  Receive Date: 20090216
  Receipt Date: 20090204
  Transmission Date: 20090719
  Serious: Yes (Hospitalization, Other)
  Sender: FDA-Public Use
  Company Number: US-AMGEN-US332069

PATIENT
  Sex: Male

DRUGS (1)
  1. NPLATE [Suspect]
     Indication: IDIOPATHIC THROMBOCYTOPENIC PURPURA
     Route: 065
     Dates: end: 20081001

REACTIONS (4)
  - GALLBLADDER NON-FUNCTIONING [None]
  - GALLBLADDER OPERATION [None]
  - HOSPITALISATION [None]
  - SPLENECTOMY [None]
